FAERS Safety Report 7294435-X (Version None)
Quarter: 2011Q1

REPORT INFORMATION
  Report Type: 
  Country: None (occurrence: None)
  Receive Date: 20110215
  Receipt Date: 20110207
  Transmission Date: 20110831
  Serious: Yes (Hospitalization, Other)
  Sender: FDA-Public Use
  Company Number: US-ELI_LILLY_AND_COMPANY-US200906005605

PATIENT
  Sex: Female
  Weight: 95.238 kg

DRUGS (16)
  1. HYDROCORTISONE [Concomitant]
     Dosage: 50 MG, 2/D
     Route: 048
  2. HYDROCORTISONE [Concomitant]
     Dosage: 20 MG, 2/D
  3. LANTUS [Concomitant]
     Dosage: UNK, UNKNOWN
  4. INSULIN [Concomitant]
     Dosage: UNK, UNK
  5. LASIX [Concomitant]
     Dosage: 40 MG, UNK
     Dates: start: 20080301
  6. TYLENOL                                 /SCH/ [Concomitant]
     Indication: HEADACHE
     Dosage: UNK, AS NEEDED
  7. FLORINEF [Concomitant]
     Dosage: 1 MG, DAILY (1/D)
  8. METFORMIN HCL [Concomitant]
     Dosage: UNK, UNKNOWN
     Route: 048
  9. COUMADIN [Concomitant]
     Dosage: 6 MG, DAILY (1/D)
  10. BYETTA [Suspect]
     Dosage: UNK, UNKNOWN
     Dates: start: 20071129, end: 20080125
  11. HYDROCORTISONE [Concomitant]
     Dosage: 40 MG, 2/D
     Route: 042
  12. COUMADIN [Concomitant]
     Dosage: 3 MG, DAILY (1/D)
  13. COUMADIN [Concomitant]
     Dosage: 5 MG, DAILY (1/D)
  14. COUMADIN [Concomitant]
     Dosage: 5 MG, DAILY (1/D)
  15. LANTUS [Concomitant]
     Dosage: 15 U, EACH EVENING
     Route: 058
     Dates: start: 20080601
  16. STARLIX [Concomitant]
     Dosage: UNK, UNKNOWN

REACTIONS (8)
  - RENAL FAILURE [None]
  - GASTRITIS [None]
  - NERVE INJURY [None]
  - PANCREATITIS ACUTE [None]
  - WEIGHT DECREASED [None]
  - OFF LABEL USE [None]
  - PANCREATITIS CHRONIC [None]
  - GAIT DISTURBANCE [None]
